FAERS Safety Report 4661785-2 (Version None)
Quarter: 2005Q2

REPORT INFORMATION
  Report Type: 
  Country: None (occurrence: None)
  Receive Date: 20050513
  Receipt Date: 20050503
  Transmission Date: 20051028
  Serious: Yes (Hospitalization)
  Sender: FDA-Public Use
  Company Number: 2005AP02581

PATIENT
  Age: 26387 Day
  Sex: Male
  Weight: 75.4 kg

DRUGS (2)
  1. IRESSA [Suspect]
     Indication: PROSTATE CANCER
     Route: 048
     Dates: start: 20050309, end: 20050422
  2. RADIOTHERAPY [Suspect]
     Route: 065
     Dates: start: 20050316, end: 20050422

REACTIONS (1)
  - BLADDER PAIN [None]
